FAERS Safety Report 7979780-4 (Version None)
Quarter: 2011Q4

REPORT INFORMATION
  Report Type: 
  Country: None (occurrence: None)
  Receive Date: 20111214
  Receipt Date: 20111202
  Transmission Date: 20120403
  Serious: Yes (Hospitalization)
  Sender: FDA-Public Use
  Company Number: US-ROCHE-1008626

PATIENT
  Sex: Male

DRUGS (12)
  1. PERCOCET [Concomitant]
  2. HYDRALAZINE HCL [Concomitant]
  3. CYCLOSPORINE [Suspect]
     Indication: RENAL TRANSPLANT
     Dates: start: 20110218
  4. METOPROLOL SUCCINATE [Concomitant]
  5. MYCOPHENOLATE MOFETIL (CELLCEPT) [Suspect]
     Indication: RENAL TRANSPLANT
     Dates: start: 20070723
  6. PREDNISONE [Suspect]
     Indication: RENAL TRANSPLANT
     Dates: start: 20090123
  7. ISOSORBIDE MONONITRATE [Concomitant]
  8. LIPITOR [Concomitant]
  9. FUROSEMIDE [Concomitant]
     Dates: start: 20110711
  10. CLONIDINE HCL [Concomitant]
  11. KLOR-CON [Concomitant]
  12. WARFARIN SODIUM [Suspect]
     Indication: RENAL TRANSPLANT

REACTIONS (7)
  - ISCHAEMIC STROKE [None]
  - VASCULITIS [None]
  - PNEUMONIA [None]
  - CHEST PAIN [None]
  - MUSCLE HAEMORRHAGE [None]
  - PYELONEPHRITIS [None]
  - CARDIAC FAILURE CONGESTIVE [None]
